FAERS Safety Report 5912914-1 (Version None)
Quarter: 2008Q4

REPORT INFORMATION
  Report Type: 
  Country: None (occurrence: None)
  Receive Date: 20081008
  Receipt Date: 20080926
  Transmission Date: 20090506
  Serious: Yes (Other)
  Sender: FDA-Public Use
  Company Number: US-PFIZER INC-2008063450

PATIENT
  Sex: Female
  Weight: 76 kg

DRUGS (15)
  1. CHANTIX [Suspect]
     Indication: SMOKING CESSATION THERAPY
     Dates: start: 20080701, end: 20080701
  2. VERAMYST [Suspect]
     Dates: start: 20080101
  3. ACETYLSALICYLIC ACID SRT [Suspect]
     Dosage: DAILY DOSE:81MG
  4. PREDNISONE TAB [Suspect]
  5. ZYRTEC [Concomitant]
  6. ZESTRIL [Concomitant]
  7. AZMACORT [Concomitant]
  8. SPIRIVA [Concomitant]
  9. LEVOXYL [Concomitant]
  10. DARVOCET [Concomitant]
  11. NITROGLYCERIN [Concomitant]
  12. MULTI-VITAMINS [Concomitant]
  13. TRAZODONE HCL [Concomitant]
  14. ASCORBIC ACID [Concomitant]
  15. FISH OIL [Concomitant]

REACTIONS (9)
  - ABDOMINAL DISTENSION [None]
  - ARTHRITIS [None]
  - BLOOD GLUCOSE INCREASED [None]
  - BLOOD UREA INCREASED [None]
  - GINGIVAL BLEEDING [None]
  - INCISIONAL DRAINAGE [None]
  - MOUTH HAEMORRHAGE [None]
  - RED CELL DISTRIBUTION WIDTH ABNORMAL [None]
  - VITAMIN K INCREASED [None]
